FAERS Safety Report 6030854-7 (Version None)
Quarter: 2009Q1

REPORT INFORMATION
  Report Type: 
  Country: None (occurrence: None)
  Receive Date: 20090106
  Receipt Date: 20081222
  Transmission Date: 20090719
  Serious: Yes (Hospitalization)
  Sender: FDA-Public Use
  Company Number: 127992

PATIENT
  Age: 68 Year
  Sex: Female

DRUGS (2)
  1. CYTARABINE [Suspect]
     Indication: ACUTE MYELOID LEUKAEMIA
     Dosage: 20 MG/M2, ONCE A DAY1-10 EVERY 4 WEEKS, ADMINISTERED ON DAYS 1-10 EVERY 4 WEEKS) SUBCUTANEOUS
     Route: 058
     Dates: start: 20081202, end: 20081206
  2. CYTARABINE [Suspect]
     Indication: ACUTE MYELOID LEUKAEMIA
     Dosage: 20 MG/M2, ONCE A DAY1-10 EVERY 4 WEEKS, ADMINISTERED ON DAYS 1-10 EVERY 4 WEEKS) SUBCUTANEOUS
     Route: 058
     Dates: start: 20081010

REACTIONS (7)
  - BLOOD SODIUM DECREASED [None]
  - CHILLS [None]
  - HAEMOGLOBIN DECREASED [None]
  - NEUTROPENIA [None]
  - PLATELET COUNT DECREASED [None]
  - PYREXIA [None]
  - TRANSFUSION REACTION [None]
